FAERS Safety Report 5755990-1 (Version None)
Quarter: 2008Q2

REPORT INFORMATION
  Report Type: 
  Country: None (occurrence: None)
  Receive Date: 20080602
  Receipt Date: 20080327
  Transmission Date: 20081010
  Serious: No
  Sender: FDA-Public Use
  Company Number: US-ABBOTT-08P-163-0444809-00

PATIENT
  Sex: Male
  Weight: 88.53 kg

DRUGS (2)
  1. ZEMPLAR CAPSULES 2MCG [Suspect]
     Indication: DRUG USE FOR UNKNOWN INDICATION
     Route: 048
     Dates: start: 20080325, end: 20080325
  2. HECTORIAL [Concomitant]
     Indication: DRUG USE FOR UNKNOWN INDICATION
     Dosage: ON AN EMPTY STOMACH
     Route: 048

REACTIONS (2)
  - NAUSEA [None]
  - STOMACH DISCOMFORT [None]
